FAERS Safety Report 9180239 (Version 5)
Quarter: 2013Q4

REPORT INFORMATION
  Report Type: Spontaneous
  Country: US (occurrence: US)
  Receive Date: 20130322
  Receipt Date: 20131105
  Transmission Date: 20140711
  Serious: Yes (Death, Hospitalization)
  Sender: FDA-Public Use
  Company Number: US-BIOGENIDEC-2013BI024171

PATIENT
  Age: 46 Year
  Sex: Female

DRUGS (3)
  1. TYSABRI [Suspect]
     Indication: MULTIPLE SCLEROSIS
     Route: 042
     Dates: start: 20070315, end: 20090311
  2. TYSABRI [Suspect]
     Indication: MULTIPLE SCLEROSIS
     Route: 042
     Dates: start: 20070315, end: 20120222
  3. TYSABRI [Suspect]
     Indication: MULTIPLE SCLEROSIS
     Route: 042
     Dates: start: 20121127

REACTIONS (14)
  - Death [Fatal]
  - Respiratory failure [Not Recovered/Not Resolved]
  - Brain stem syndrome [Unknown]
  - Hypoxic-ischaemic encephalopathy [Unknown]
  - Pneumonia [Not Recovered/Not Resolved]
  - Pulmonary oedema [Not Recovered/Not Resolved]
  - Oxygen saturation abnormal [Not Recovered/Not Resolved]
  - Respiratory tract infection [Unknown]
  - Apallic syndrome [Unknown]
  - Convulsion [Unknown]
  - Aspiration [Unknown]
  - Unresponsive to stimuli [Not Recovered/Not Resolved]
  - General symptom [Not Recovered/Not Resolved]
  - Respiratory arrest [Recovered/Resolved]
